FAERS Safety Report 9931607 (Version 2)
Quarter: 2014Q1

REPORT INFORMATION
  Report Type: Spontaneous
  Country: TR (occurrence: TR)
  Receive Date: 20140228
  Receipt Date: 20140228
  Transmission Date: 20141002
  Serious: Yes (Other)
  Sender: FDA-Public Use
  Company Number: TR-AMGEN-TURSP2013029181

PATIENT
  Age: 12 Year
  Sex: Female
  Weight: 42 kg

DRUGS (2)
  1. ENBREL [Suspect]
     Indication: JUVENILE IDIOPATHIC ARTHRITIS
     Dosage: 50 MG, WEEKLY
     Route: 058
     Dates: start: 20110801, end: 20130405
  2. ENBREL [Suspect]
     Dosage: 50 MG, QWK
     Route: 058

REACTIONS (2)
  - Rash [Not Recovered/Not Resolved]
  - Measles [Recovered/Resolved]
